FAERS Safety Report 17836940 (Version 1)
Quarter: 2020Q2

REPORT INFORMATION
  Report Type: Spontaneous
  Country: US (occurrence: US)
  Receive Date: 20200529
  Receipt Date: 20200529
  Transmission Date: 20200714
  Serious: Yes (Life-Threatening, Hospitalization, Other)
  Sender: FDA-Public Use
  Company Number: US-AUROBINDO-AUR-APL-2020-025927

PATIENT
  Age: 64 Year
  Sex: Male

DRUGS (6)
  1. ATAZANAVIR. [Suspect]
     Active Substance: ATAZANAVIR
     Indication: HIV INFECTION
     Dosage: 400 MILLIGRAM, DAILY
     Route: 065
  2. RALTEGRAVIR. [Suspect]
     Active Substance: RALTEGRAVIR
     Indication: HIV INFECTION
     Dosage: 400 MILLIGRAM, TWO TIMES A DAY
     Route: 065
  3. ROSUVASTATIN. [Concomitant]
     Active Substance: ROSUVASTATIN
     Indication: PRODUCT USED FOR UNKNOWN INDICATION
     Dosage: 40 MILLIGRAM, DAILY
     Route: 065
  4. INSULIN [Concomitant]
     Active Substance: INSULIN NOS
     Indication: PRODUCT USED FOR UNKNOWN INDICATION
     Dosage: UNK
     Route: 065
  5. FENOFIBRATE. [Concomitant]
     Active Substance: FENOFIBRATE
     Indication: PRODUCT USED FOR UNKNOWN INDICATION
     Dosage: 145 MILLIGRAM, DAILY
     Route: 065
  6. EMTRICITABINE [Suspect]
     Active Substance: EMTRICITABINE
     Indication: HIV INFECTION
     Dosage: 200 MILLIGRAM, DAILY
     Route: 065

REACTIONS (5)
  - Pancreatitis acute [Recovered/Resolved]
  - Vomiting [Recovered/Resolved]
  - Hypertriglyceridaemia [Recovered/Resolved]
  - Nausea [Recovered/Resolved]
  - Abdominal pain upper [Recovered/Resolved]
